FAERS Safety Report 8609153-2 (Version None)
Quarter: 2012Q3

REPORT INFORMATION
  Report Type: 
  Country: None (occurrence: None)
  Receive Date: 20120821
  Receipt Date: 20120809
  Transmission Date: 20120928
  Serious: Yes (Other)
  Sender: FDA-Public Use
  Company Number: AU-BRISTOL-MYERS SQUIBB COMPANY-16849085

PATIENT
  Age: 61 Year
  Sex: Male
  Weight: 76 kg

DRUGS (6)
  1. ORENCIA [Suspect]
     Indication: RHEUMATOID ARTHRITIS
     Route: 042
     Dates: start: 20110115
  2. WARFARIN SODIUM [Concomitant]
  3. PREDNISOLONE [Concomitant]
  4. LASIX [Concomitant]
  5. SOTALOL HCL [Concomitant]
  6. GEMFIBROZIL [Concomitant]
     Dosage: GEMHEXAL, 1DF= 1 UNIT NOS

REACTIONS (2)
  - SKIN CANCER [None]
  - CARDIAC DISORDER [None]
